FAERS Safety Report 13033285 (Version 2)
Quarter: 2016Q4

REPORT INFORMATION
  Report Type: Report from Study
  Country: US (occurrence: US)
  Receive Date: 20161216
  Receipt Date: 20161226
  Transmission Date: 20170207
  Serious: Yes (Other)
  Sender: FDA-Public Use
  Company Number: US-JAZZ-2016-US-022887

PATIENT
  Age: 62 Year
  Sex: Female

DRUGS (3)
  1. XYREM [Suspect]
     Active Substance: SODIUM OXYBATE
     Dosage: DOSE ADJUSTMENTS
     Route: 048
     Dates: start: 201009, end: 201608
  2. XYREM [Suspect]
     Active Substance: SODIUM OXYBATE
     Dosage: 4 G, BID
     Route: 048
     Dates: start: 201608
  3. XYREM [Suspect]
     Active Substance: SODIUM OXYBATE
     Indication: NARCOLEPSY
     Dosage: 2.25 G, BID
     Route: 048
     Dates: start: 201009, end: 201009

REACTIONS (9)
  - Renal failure [Unknown]
  - Hepatic enzyme increased [Unknown]
  - Blood pressure decreased [Unknown]
  - Nocturia [Unknown]
  - Rib fracture [Unknown]
  - Pain [Unknown]
  - Wheezing [Unknown]
  - Road traffic accident [Unknown]
  - Skin infection [Unknown]

NARRATIVE: CASE EVENT DATE: 20161015
